FAERS Safety Report 18146480 (Version 2)
Quarter: 2020Q4

REPORT INFORMATION
  Report Type: Spontaneous
  Country: GB (occurrence: GB)
  Receive Date: 20200813
  Receipt Date: 20201006
  Transmission Date: 20210113
  Serious: Yes (Death, Hospitalization)
  Sender: FDA-Public Use
  Company Number: NVSC2020GB223912

PATIENT
  Sex: Female

DRUGS (5)
  1. COCODAMOL [Suspect]
     Active Substance: ACETAMINOPHEN\CODEINE PHOSPHATE
     Indication: PRODUCT USED FOR UNKNOWN INDICATION
     Dosage: 8 DF, QD (A DAY)
     Route: 065
  2. GABAPENTIN. [Suspect]
     Active Substance: GABAPENTIN
     Indication: PRODUCT USED FOR UNKNOWN INDICATION
     Dosage: 9 DF, QD (A DAY)
     Route: 065
  3. BUPRENORPHINE. [Suspect]
     Active Substance: BUPRENORPHINE
     Indication: PRODUCT USED FOR UNKNOWN INDICATION
     Dosage: 20 UG, QD (A DAY)
     Route: 065
     Dates: start: 201005
  4. MORPHINE [Suspect]
     Active Substance: MORPHINE
     Indication: PRODUCT USED FOR UNKNOWN INDICATION
     Dosage: UNK
     Route: 065
  5. BUPRENORPHINE. [Suspect]
     Active Substance: BUPRENORPHINE
     Indication: PRODUCT USED FOR UNKNOWN INDICATION
     Dosage: UNK
     Route: 065
     Dates: start: 2017

REACTIONS (24)
  - Fall [Fatal]
  - Stereotypy [Fatal]
  - Hallucination [Fatal]
  - Decreased appetite [Fatal]
  - Vomiting [Fatal]
  - Toxicity to various agents [Fatal]
  - Brain injury [Fatal]
  - Impaired healing [Fatal]
  - Arthralgia [Fatal]
  - Confusional state [Fatal]
  - Atrial fibrillation [Fatal]
  - Amnesia [Fatal]
  - Dementia [Fatal]
  - Colitis ulcerative [Fatal]
  - Myalgia [Fatal]
  - Paraesthesia [Fatal]
  - Dysphagia [Fatal]
  - Abnormal loss of weight [Fatal]
  - Somnolence [Fatal]
  - Mental disorder [Fatal]
  - Asthenia [Fatal]
  - Dependence [Fatal]
  - Dizziness [Fatal]
  - Nausea [Fatal]

NARRATIVE: CASE EVENT DATE: 2015
